FAERS Safety Report 8052905 (Version 3)
Quarter: 2013Q4

REPORT INFORMATION
  Report Type: Spontaneous
  Country: US (occurrence: US)
  Receive Date: 20110725
  Receipt Date: 20131114
  Transmission Date: 20140711
  Serious: Yes (Hospitalization, Other)
  Sender: FDA-Public Use
  Company Number: US-ASTRAZENECA-2011SE43070

PATIENT
  Age: 71 Year
  Sex: Male
  Weight: 86.2 kg

DRUGS (15)
  1. NEXIUM [Suspect]
     Indication: GASTROOESOPHAGEAL REFLUX DISEASE
     Route: 048
     Dates: start: 2003
  2. NEXIUM [Suspect]
     Indication: GASTROOESOPHAGEAL REFLUX DISEASE
     Route: 048
     Dates: start: 2012
  3. NEXIUM [Suspect]
     Indication: GASTROOESOPHAGEAL REFLUX DISEASE
     Route: 048
  4. PRILOSEC [Interacting]
     Indication: GASTROOESOPHAGEAL REFLUX DISEASE
     Route: 048
     Dates: start: 1998
  5. PRILOSEC [Interacting]
     Indication: GASTROOESOPHAGEAL REFLUX DISEASE
     Route: 048
     Dates: start: 2013
  6. METOPROLOL SUCCINATE [Suspect]
     Indication: CARDIAC DISORDER
     Route: 048
     Dates: start: 2010
  7. PLAVIX [Interacting]
     Route: 048
     Dates: start: 2013, end: 2013
  8. VASOTEC [Concomitant]
     Indication: CARDIAC DISORDER
     Route: 048
     Dates: start: 2010
  9. HYDROCHLOROTHIAZIDE [Concomitant]
  10. ONCE DAILY VITAMIN [Concomitant]
     Indication: SUPPLEMENTATION THERAPY
     Dosage: DAILY
     Route: 048
     Dates: start: 2010
  11. ASPIRIN [Concomitant]
     Indication: BLOOD DISORDER
     Route: 048
     Dates: start: 2010
  12. CARAFATE [Concomitant]
     Indication: GASTRIC DISORDER
     Route: 048
     Dates: start: 2010
  13. FISH OIL [Concomitant]
     Indication: BLOOD DISORDER
     Route: 048
     Dates: start: 2010
  14. LIPITOR [Concomitant]
     Indication: BLOOD CHOLESTEROL ABNORMAL
     Dosage: DAILY
     Route: 048
     Dates: start: 2011
  15. PRADAXA [Concomitant]
     Indication: BLOOD DISORDER
     Route: 048
     Dates: start: 2013

REACTIONS (11)
  - Drug interaction [Unknown]
  - Myocardial infarction [Unknown]
  - Hiatus hernia [Unknown]
  - Coronary artery occlusion [Unknown]
  - Dyspnoea [Unknown]
  - Gastrooesophageal reflux disease [Unknown]
  - Abdominal distension [Unknown]
  - Gastric pH increased [Unknown]
  - Dyspnoea [Unknown]
  - Off label use [Unknown]
  - Drug ineffective [Unknown]
